FAERS Safety Report 21323989 (Version 1)
Quarter: 2022Q3

REPORT INFORMATION
  Report Type: Spontaneous
  Country: US (occurrence: US)
  Receive Date: 20220912
  Receipt Date: 20220912
  Transmission Date: 20221027
  Serious: Yes (Hospitalization)
  Sender: FDA-Public Use
  Company Number: US-AMGEN-USASP2022154434

PATIENT
  Age: 78 Year
  Sex: Female

DRUGS (1)
  1. REPATHA [Suspect]
     Active Substance: EVOLOCUMAB
     Indication: Product used for unknown indication
     Dosage: 420 MILLIGRAM, QMO
     Route: 065
     Dates: start: 2018

REACTIONS (5)
  - COVID-19 [Recovering/Resolving]
  - Weight decreased [Unknown]
  - Fall [Unknown]
  - Limb injury [Recovering/Resolving]
  - Drug dose omission by device [Unknown]

NARRATIVE: CASE EVENT DATE: 20220101
